FAERS Safety Report 17483113 (Version 3)
Quarter: 2020Q2

REPORT INFORMATION
  Report Type: Spontaneous
  Country: US (occurrence: US)
  Receive Date: 20200302
  Receipt Date: 20200629
  Transmission Date: 20200713
  Serious: No
  Sender: FDA-Public Use
  Company Number: US-PFIZER INC-2020027877

PATIENT
  Age: 35 Year
  Sex: Female

DRUGS (6)
  1. HERCEPTIN [Concomitant]
     Active Substance: TRASTUZUMAB
     Indication: BREAST CANCER FEMALE
     Dosage: UNK
  2. PARAPLATIN [Concomitant]
     Active Substance: CARBOPLATIN
     Indication: BREAST CANCER FEMALE
     Dosage: UNK
  3. TAMOXIFEN [Concomitant]
     Active Substance: TAMOXIFEN
     Indication: HORMONE THERAPY
     Dosage: UNK
     Dates: start: 201310, end: 202003
  4. DOCETAXEL. [Suspect]
     Active Substance: DOCETAXEL
     Indication: BREAST CANCER FEMALE
     Dosage: 120 MG, CYCLIC (06 CYCLES, EVERY 3 WEEKS)
     Dates: start: 20130412, end: 20130829
  5. TAXOTERE [Suspect]
     Active Substance: DOCETAXEL
     Indication: BREAST CANCER FEMALE
     Dosage: 120 MG, CYCLIC (06 CYCLES, EVERY 3 WEEKS)
     Dates: start: 20130412, end: 20130829
  6. NEUPOGEN [Concomitant]
     Active Substance: FILGRASTIM
     Indication: BREAST CANCER FEMALE
     Dosage: UNK

REACTIONS (8)
  - Hair texture abnormal [Not Recovered/Not Resolved]
  - Madarosis [Not Recovered/Not Resolved]
  - Hair disorder [Not Recovered/Not Resolved]
  - Anxiety [Unknown]
  - Insomnia [Unknown]
  - Hair colour changes [Not Recovered/Not Resolved]
  - Depression [Unknown]
  - Alopecia [Not Recovered/Not Resolved]

NARRATIVE: CASE EVENT DATE: 201304
